FAERS Safety Report 7431717-2 (Version None)
Quarter: 2011Q2

REPORT INFORMATION
  Report Type: 
  Country: None (occurrence: None)
  Receive Date: 20110422
  Receipt Date: 20110414
  Transmission Date: 20111010
  Serious: Yes (Hospitalization, Other)
  Sender: FDA-Public Use
  Company Number: US-BIOGENIDEC-2011BI001025

PATIENT
  Age: 55 Year
  Sex: Female

DRUGS (4)
  1. AVONEX [Suspect]
     Route: 030
     Dates: start: 20110101
  2. AVONEX [Suspect]
     Route: 030
     Dates: start: 19961101, end: 20030801
  3. AVONEX [Suspect]
     Route: 030
     Dates: start: 20030801, end: 20080201
  4. AVONEX [Suspect]
     Indication: MULTIPLE SCLEROSIS
     Route: 030
     Dates: start: 20090301, end: 20101201

REACTIONS (4)
  - MYOCARDIAL INFARCTION [None]
  - CEREBROVASCULAR ACCIDENT [None]
  - RENAL FAILURE [None]
  - HEPATITIS C [None]
